FAERS Safety Report 5415924-6 (Version None)
Quarter: 2007Q3

REPORT INFORMATION
  Report Type: 
  Country: None (occurrence: None)
  Receive Date: 20070815
  Receipt Date: 20070808
  Transmission Date: 20080115
  Serious: Yes (Death, Disabling, Other)
  Sender: FDA-Public Use
  Company Number: RU-SHR-RU-2007-028545

PATIENT
  Age: 58 Year
  Sex: Male

DRUGS (6)
  1. CAMPATH [Suspect]
     Indication: MANTLE CELL LYMPHOMA
     Dosage: 30 MG, 3X/WEEK
     Route: 058
     Dates: start: 20061025, end: 20061215
  2. COTRIM [Concomitant]
     Dosage: 960 MG/D, UNK
  3. VALACYCLOVIR HCL [Concomitant]
     Dosage: 500 MG/D, UNK
  4. CIPROFLOXACIN [Concomitant]
     Dosage: 1000 MG/D, UNK
  5. FLUCONAZOLE [Concomitant]
     Dosage: 150 MG/D, UNK
  6. LAMIVUDINE [Concomitant]
     Dosage: 150 MG/D, UNK

REACTIONS (2)
  - ACUTE RESPIRATORY FAILURE [None]
  - ASTHENIA [None]
